FAERS Safety Report 17151805 (Version 2)
Quarter: 2019Q4

REPORT INFORMATION
  Report Type: Spontaneous
  Country: JP (occurrence: JP)
  Receive Date: 20191213
  Receipt Date: 20191231
  Transmission Date: 20200122
  Serious: Yes (Other)
  Sender: FDA-Public Use
  Company Number: JP-PFIZER INC-2019467738

PATIENT
  Age: 36 Year
  Sex: Male

DRUGS (3)
  1. REBAMIPIDE [Concomitant]
     Active Substance: REBAMIPIDE
     Dosage: 100 MG, 3X/DAY
     Route: 048
     Dates: start: 20190607, end: 20190615
  2. LOXOPROFEN [Concomitant]
     Active Substance: LOXOPROFEN
     Dosage: 60 MG, 3X/DAY
     Route: 048
     Dates: start: 20190607, end: 20190615
  3. LYRICA [Suspect]
     Active Substance: PREGABALIN
     Indication: BACK PAIN
     Dosage: 25 MG, 3X/DAY
     Route: 048
     Dates: start: 20190607, end: 20190615

REACTIONS (1)
  - Diffuse alopecia [Recovering/Resolving]

NARRATIVE: CASE EVENT DATE: 20190610
